FAERS Safety Report 5626228-0 (Version None)
Quarter: 2008Q1

REPORT INFORMATION
  Report Type: 
  Country: None (occurrence: None)
  Receive Date: 20080214
  Receipt Date: 20080205
  Transmission Date: 20080703
  Serious: Yes (Hospitalization)
  Sender: FDA-Public Use
  Company Number: B0506529A

PATIENT
  Age: 86 Year
  Sex: Male

DRUGS (6)
  1. SEREVENT [Suspect]
     Indication: CHRONIC OBSTRUCTIVE PULMONARY DISEASE
     Dosage: 50MCG TWICE PER DAY
     Route: 055
     Dates: start: 20071009
  2. SPIRIVA [Concomitant]
     Route: 055
  3. CLEANAL [Concomitant]
     Indication: CHRONIC OBSTRUCTIVE PULMONARY DISEASE
     Route: 048
  4. DIGOSIN [Concomitant]
     Indication: ATRIAL FIBRILLATION
     Route: 048
  5. TAMSULOSIN HCL [Concomitant]
     Indication: BENIGN PROSTATIC HYPERPLASIA
     Route: 048
  6. THEO-DUR [Concomitant]
     Indication: CHRONIC OBSTRUCTIVE PULMONARY DISEASE
     Route: 048

REACTIONS (1)
  - CHRONIC OBSTRUCTIVE PULMONARY DISEASE [None]
